FAERS Safety Report 8164449-6 (Version None)
Quarter: 2012Q1

REPORT INFORMATION
  Report Type: 
  Country: None (occurrence: None)
  Receive Date: 20120224
  Receipt Date: 20120217
  Transmission Date: 20120608
  Serious: Yes (Hospitalization)
  Sender: FDA-Public Use
  Company Number: JP-AMGEN-JPNCT2012012143

PATIENT
  Age: 72 Year
  Sex: Female
  Weight: 47 kg

DRUGS (4)
  1. XGEVA [Suspect]
     Indication: BREAST CANCER
     Dosage: 120 MG, Q4WK
     Route: 058
     Dates: start: 20110829
  2. FENTANYL CITRATE [Concomitant]
     Indication: PAIN
     Dosage: UNK
     Route: 062
  3. BLOOD SUBSTITUTES AND PERFUSION SOLUTIONS [Concomitant]
     Dosage: UNKNOWN
  4. VOLTAREN [Concomitant]
     Indication: PAIN
     Route: 050

REACTIONS (1)
  - DUODENAL STENOSIS [None]
